FAERS Safety Report 6484858-0 (Version None)
Quarter: 2009Q4

REPORT INFORMATION
  Report Type: 
  Country: None (occurrence: None)
  Receive Date: 20091123
  Receipt Date: 20090915
  Transmission Date: 20100525
  Serious: No
  Sender: FDA-Public Use
  Company Number: 8052078

PATIENT
  Age: 65 Year
  Sex: Female
  Weight: 77.2 kg

DRUGS (11)
  1. CIMZIA [Suspect]
     Indication: CROHN'S DISEASE
     Dosage: 400 MG /D SC
     Route: 058
     Dates: start: 20090914
  2. AZATHIOPRINE [Concomitant]
  3. POTASSIUM [Concomitant]
  4. FUROSEMIDE [Concomitant]
  5. PROMETRIUM [Concomitant]
  6. ESTRADIOL [Concomitant]
  7. LISINOPRIL [Concomitant]
  8. VICODIN [Concomitant]
  9. IRON [Concomitant]
  10. PRAVASTATIN [Concomitant]
  11. COUMADIN [Concomitant]

REACTIONS (2)
  - PRURITUS GENERALISED [None]
  - RASH [None]
